FAERS Safety Report 5387323-7 (Version None)
Quarter: 2007Q3

REPORT INFORMATION
  Report Type: 
  Country: None (occurrence: None)
  Receive Date: 20070716
  Receipt Date: 20070705
  Transmission Date: 20080115
  Serious: Yes (Other)
  Sender: FDA-Public Use
  Company Number: PHNU2007DE02396

PATIENT
  Age: 61 Year
  Sex: Male
  Weight: 86 kg

DRUGS (9)
  1. ZOMETA [Suspect]
     Indication: PROSTATE CANCER METASTATIC
     Dosage: 4 MG, QMO
     Route: 065
     Dates: start: 20030103
  2. TAXOTERE [Concomitant]
     Dosage: UNK, UNK
     Route: 065
     Dates: start: 20050620, end: 20050801
  3. TAXOTERE [Concomitant]
     Route: 065
     Dates: start: 20050822, end: 20060131
  4. TAXOTERE [Concomitant]
     Route: 065
     Dates: start: 20060228, end: 20060418
  5. TAXOTERE [Concomitant]
     Route: 065
     Dates: start: 20060724, end: 20060905
  6. DURAGESIC-100 [Concomitant]
     Dosage: 25 UG/H
     Route: 065
     Dates: start: 20020221
  7. ZOLADEX [Concomitant]
     Dosage: 10.8 MG, UNK
     Route: 065
     Dates: start: 20020227
  8. CASODEX [Concomitant]
     Dosage: UNK, UNK
     Route: 065
     Dates: start: 20020217
  9. SELENASE [Concomitant]
     Dosage: 2 UG/DAILY
     Route: 065
     Dates: start: 20051220

REACTIONS (6)
  - ANAEMIA [None]
  - GENERAL PHYSICAL HEALTH DETERIORATION [None]
  - LEUKOPENIA [None]
  - OSTEONECROSIS [None]
  - SPINAL CORD COMPRESSION [None]
  - URINARY RETENTION [None]
